FAERS Safety Report 16712384 (Version 1)
Quarter: 2019Q3

REPORT INFORMATION
  Report Type: Spontaneous
  Country: None (occurrence: US)
  Receive Date: 20190816
  Receipt Date: 20190816
  Transmission Date: 20191004
  Serious: No
  Sender: FDA-Public Use
  Company Number: US-CARLSBAD TECHNOLOGY, INC.-2073266

PATIENT
  Sex: Female

DRUGS (1)
  1. ACYCLOVIR CAPSULE 200 MG [Suspect]
     Active Substance: ACYCLOVIR
     Route: 048

REACTIONS (1)
  - Hallucinations, mixed [Recovering/Resolving]
